FAERS Safety Report 7659905-0 (Version None)
Quarter: 2011Q3

REPORT INFORMATION
  Report Type: 
  Country: None (occurrence: None)
  Receive Date: 20110805
  Receipt Date: 20110725
  Transmission Date: 20111222
  Serious: No
  Sender: FDA-Public Use
  Company Number: US-B.I. PHARMACEUTICALS,INC./RIDGEFIELD-2011-BP-14486BP

PATIENT
  Sex: Male

DRUGS (17)
  1. PRECOSE [Concomitant]
     Indication: TYPE 2 DIABETES MELLITUS
     Dosage: 50 MG
     Route: 048
  2. AMBIENT [Concomitant]
     Dosage: 10 MG
     Route: 048
  3. METOPROLOL TARTRATE [Concomitant]
     Indication: CARDIAC DISORDER
     Dosage: 50 MG
     Route: 048
  4. ALLOPURINOL [Concomitant]
     Indication: GOUT
     Dosage: 300 MG
     Route: 048
  5. LOVAZA [Concomitant]
     Indication: BLOOD TRIGLYCERIDES INCREASED
     Dosage: 4 G
     Route: 048
  6. LIPITOR [Concomitant]
     Indication: BLOOD CHOLESTEROL INCREASED
     Dosage: 80 MG
     Route: 048
  7. PRILOSEC OTC [Concomitant]
     Indication: HIATUS HERNIA
     Dosage: 40 MG
  8. RAMIPRIL [Concomitant]
     Dosage: 10 MG
     Route: 048
  9. PRADAXA [Suspect]
     Dosage: 300 MG
     Route: 048
     Dates: start: 20110601
  10. PRILOSEC OTC [Concomitant]
     Indication: DYSPEPSIA
  11. TRILIPIX [Concomitant]
     Indication: BLOOD TRIGLYCERIDES INCREASED
     Dosage: 135 MG
     Route: 048
  12. PRADAXA [Suspect]
     Indication: ATRIAL FIBRILLATION
     Dosage: 300 MG
     Route: 048
     Dates: start: 20110526
  13. NEXIUM [Concomitant]
     Indication: HIATUS HERNIA
  14. FUROSEMIDE [Concomitant]
     Indication: FLUID IMBALANCE
     Dosage: 80 MG
     Route: 048
  15. PLAVIX [Concomitant]
     Indication: ANTICOAGULANT THERAPY
     Dosage: 75 MG
     Route: 048
  16. FOLIC ACID [Concomitant]
     Indication: VITAMIN SUPPLEMENTATION
     Dosage: 2 MG
     Route: 048
  17. KLOR-CON [Concomitant]
     Indication: MINERAL SUPPLEMENTATION
     Dosage: 20 MEQ
     Route: 048

REACTIONS (6)
  - FLATULENCE [None]
  - CONSTIPATION [None]
  - ABDOMINAL DISTENSION [None]
  - CHEST PAIN [None]
  - ABDOMINAL DISCOMFORT [None]
  - BLEEDING TIME PROLONGED [None]
